FAERS Safety Report 12402865 (Version 1)
Quarter: 2016Q2

REPORT INFORMATION
  Report Type: Spontaneous
  Country: BE (occurrence: BE)
  Receive Date: 20160525
  Receipt Date: 20160525
  Transmission Date: 20160815
  Serious: Yes (Disabling, Other)
  Sender: FDA-Public Use
  Company Number: BE-PFIZER INC-2016265593

PATIENT
  Age: 47 Year
  Sex: Male

DRUGS (1)
  1. MEDROL [Suspect]
     Active Substance: METHYLPREDNISOLONE
     Indication: RETROPERITONEAL FIBROSIS
     Dosage: 64MG
     Route: 048
     Dates: start: 1995

REACTIONS (5)
  - Throat lesion [Unknown]
  - Spinal disorder [Unknown]
  - Speech disorder [Unknown]
  - Product use issue [Unknown]
  - Kidney ablation [Unknown]
